FAERS Safety Report 5725114-5 (Version None)
Quarter: 2008Q2

REPORT INFORMATION
  Report Type: 
  Country: None (occurrence: None)
  Receive Date: 20080501
  Receipt Date: 20071217
  Transmission Date: 20081010
  Serious: Yes (Life-Threatening, Other)
  Sender: FDA-Public Use
  Company Number: US-BAYER-200716630NA

PATIENT
  Age: 47 Year
  Sex: Female

DRUGS (2)
  1. ULTRAVIST 150 [Suspect]
     Indication: COMPUTERISED TOMOGRAM
     Dosage: UNIT DOSE: 100 ML
     Route: 042
     Dates: start: 20071205, end: 20071205
  2. READY CAT [Concomitant]
     Indication: COMPUTERISED TOMOGRAM
     Route: 048
     Dates: start: 20071205, end: 20071205

REACTIONS (7)
  - CYANOSIS [None]
  - DYSPNOEA [None]
  - GENERALISED ERYTHEMA [None]
  - HYPERHIDROSIS [None]
  - RESPIRATORY ARREST [None]
  - TREMOR [None]
  - VOMITING [None]
